FAERS Safety Report 8400883-4 (Version None)
Quarter: 2012Q2

REPORT INFORMATION
  Report Type: 
  Country: None (occurrence: None)
  Receive Date: 20120601
  Receipt Date: 20080827
  Transmission Date: 20120825
  Serious: Yes (Hospitalization, Other)
  Sender: FDA-Public Use
  Company Number: JP-BRISTOL-MYERS SQUIBB COMPANY-16526493

PATIENT
  Sex: Female

DRUGS (7)
  1. SEROQUEL [Concomitant]
  2. CLONAZEPAM [Concomitant]
     Dosage: 2 TABS
  3. ZYPREXA [Concomitant]
  4. DEPAKENE [Concomitant]
     Dosage: 2 TABS
  5. DIAZEPAM [Concomitant]
  6. ABILIFY [Suspect]
     Dosage: 24 MG
     Route: 048
  7. FLUNITRAZEPAM [Concomitant]

REACTIONS (2)
  - DELUSION [None]
  - HALLUCINATION, AUDITORY [None]
